FAERS Safety Report 17422083 (Version 7)
Quarter: 2020Q2

REPORT INFORMATION
  Report Type: Spontaneous
  Country: US (occurrence: US)
  Receive Date: 20200214
  Receipt Date: 20200417
  Transmission Date: 20200713
  Serious: Yes (Death, Hospitalization)
  Sender: FDA-Public Use
  Company Number: US-BIOGEN-2020BI00833820

PATIENT
  Age: 57 Year
  Sex: Female
  Weight: 59.02 kg

DRUGS (4)
  1. TYSABRI [Suspect]
     Active Substance: NATALIZUMAB
     Indication: MULTIPLE SCLEROSIS
     Route: 042
     Dates: start: 20110504, end: 20130408
  2. TYSABRI [Suspect]
     Active Substance: NATALIZUMAB
     Route: 042
     Dates: start: 20140818, end: 20140818
  3. TYSABRI [Suspect]
     Active Substance: NATALIZUMAB
     Route: 042
     Dates: start: 20150626, end: 20150724
  4. TYSABRI [Suspect]
     Active Substance: NATALIZUMAB
     Route: 042
     Dates: start: 20170315, end: 20191220

REACTIONS (3)
  - Multiple sclerosis relapse [Unknown]
  - Progressive multifocal leukoencephalopathy [Fatal]
  - Bacterial infection [Unknown]

NARRATIVE: CASE EVENT DATE: 201912
